FAERS Safety Report 20871075 (Version 2)
Quarter: 2022Q2

REPORT INFORMATION
  Report Type: Report from Study
  Country: PL (occurrence: None)
  Receive Date: 20220525
  Receipt Date: 20220612
  Transmission Date: 20220720
  Serious: Yes (Hospitalization)
  Sender: FDA-Public Use
  Company Number: PL-ROCHE-3098387

PATIENT
  Age: 67 Year
  Sex: Female

DRUGS (18)
  1. ACALABRUTINIB [Suspect]
     Active Substance: ACALABRUTINIB
     Indication: Chronic lymphocytic leukaemia
     Route: 065
     Dates: start: 20200921, end: 20201005
  2. ACALABRUTINIB [Suspect]
     Active Substance: ACALABRUTINIB
     Route: 065
     Dates: start: 20201006, end: 20201020
  3. ACALABRUTINIB [Suspect]
     Active Substance: ACALABRUTINIB
     Route: 065
     Dates: start: 20201021, end: 20201103
  4. ACALABRUTINIB [Suspect]
     Active Substance: ACALABRUTINIB
     Route: 065
     Dates: start: 20201104, end: 20201117
  5. ACALABRUTINIB [Suspect]
     Active Substance: ACALABRUTINIB
     Route: 065
     Dates: start: 20201118, end: 20201215
  6. ACALABRUTINIB [Suspect]
     Active Substance: ACALABRUTINIB
     Route: 065
     Dates: start: 20201216, end: 20210112
  7. ACALABRUTINIB [Suspect]
     Active Substance: ACALABRUTINIB
     Route: 065
     Dates: start: 20210113, end: 20210209
  8. ACALABRUTINIB [Suspect]
     Active Substance: ACALABRUTINIB
     Route: 065
     Dates: start: 20210210, end: 20210309
  9. ACALABRUTINIB [Suspect]
     Active Substance: ACALABRUTINIB
     Route: 065
     Dates: start: 20210310, end: 20210601
  10. ACALABRUTINIB [Suspect]
     Active Substance: ACALABRUTINIB
     Route: 065
     Dates: start: 20210602, end: 20210824
  11. ACALABRUTINIB [Suspect]
     Active Substance: ACALABRUTINIB
     Route: 065
     Dates: start: 20210825, end: 20211123
  12. ACALABRUTINIB [Suspect]
     Active Substance: ACALABRUTINIB
     Route: 065
     Dates: start: 20211124, end: 20220216
  13. ACALABRUTINIB [Suspect]
     Active Substance: ACALABRUTINIB
     Route: 065
     Dates: start: 20220216, end: 20220424
  14. ACALABRUTINIB [Suspect]
     Active Substance: ACALABRUTINIB
     Route: 065
     Dates: start: 20220429, end: 20220429
  15. OBINUTUZUMAB [Suspect]
     Active Substance: OBINUTUZUMAB
     Indication: Chronic lymphocytic leukaemia
     Dosage: INFUSION START 11:00 - INFUSION STOP 02/JAN/2017 15:50
     Route: 042
     Dates: start: 20170102
  16. OBINUTUZUMAB [Suspect]
     Active Substance: OBINUTUZUMAB
     Dosage: INFUSION START 10:36- INFUSION STOP 02/JAN/2017 14: 49
     Route: 042
     Dates: start: 20170524, end: 20170524
  17. CHLORAMBUCIL [Suspect]
     Active Substance: CHLORAMBUCIL
     Indication: Chronic lymphocytic leukaemia
     Route: 065
     Dates: start: 20170102
  18. CHLORAMBUCIL [Suspect]
     Active Substance: CHLORAMBUCIL
     Route: 065
     Dates: start: 20170607

REACTIONS (1)
  - COVID-19 pneumonia [Not Recovered/Not Resolved]

NARRATIVE: CASE EVENT DATE: 20220429
